FAERS Safety Report 7876144-9 (Version None)
Quarter: 2011Q4

REPORT INFORMATION
  Report Type: 
  Country: None (occurrence: None)
  Receive Date: 20111031
  Receipt Date: 20111027
  Transmission Date: 20120403
  Serious: Yes (Disabling)
  Sender: FDA-Public Use
  Company Number: GB-EISAI INC-E2090-01812-SPO-GB

PATIENT
  Age: 27 Year
  Sex: Male

DRUGS (4)
  1. ZONISAMIDE [Suspect]
     Indication: EPILEPSY
     Dosage: 150 MG
     Route: 048
     Dates: start: 20110218, end: 20110815
  2. CARBAMAZEPINE [Concomitant]
  3. GABAPENTIN [Concomitant]
  4. LEVETIRACETAM [Concomitant]

REACTIONS (1)
  - DELUSIONAL DISORDER, PERSECUTORY TYPE [None]
